FAERS Safety Report 15846305 (Version 2)
Quarter: 2019Q1

REPORT INFORMATION
  Report Type: Report from Study
  Country: US (occurrence: US)
  Receive Date: 20190120
  Receipt Date: 20190328
  Transmission Date: 20190417
  Serious: Yes (Other)
  Sender: FDA-Public Use
  Company Number: US-ELI_LILLY_AND_COMPANY-US201811001741

PATIENT
  Sex: Female

DRUGS (4)
  1. LOSARTAN. [Concomitant]
     Active Substance: LOSARTAN
     Indication: PRODUCT USED FOR UNKNOWN INDICATION
  2. DULAGLUTIDE. [Suspect]
     Active Substance: DULAGLUTIDE
     Indication: DIABETES MELLITUS
     Dosage: 0.75 MG, WEEKLY (1/W)
     Route: 058
     Dates: start: 20181009
  3. METFORMIN [Concomitant]
     Active Substance: METFORMIN HYDROCHLORIDE
     Indication: DIABETES MELLITUS
  4. SYNTHROID [Concomitant]
     Active Substance: LEVOTHYROXINE SODIUM
     Indication: THYROID DISORDER

REACTIONS (13)
  - Abdominal pain [Unknown]
  - Insomnia [Unknown]
  - Malaise [Unknown]
  - Nausea [Unknown]
  - Feeding disorder [Unknown]
  - Nervousness [Unknown]
  - Diarrhoea [Recovered/Resolved]
  - Emotional distress [Unknown]
  - Dehydration [Unknown]
  - Diarrhoea [Recovered/Resolved]
  - Constipation [Recovered/Resolved]
  - Tremor [Unknown]
  - Sleep disorder due to general medical condition, insomnia type [Unknown]

NARRATIVE: CASE EVENT DATE: 201810
